FAERS Safety Report 11199756 (Version 2)
Quarter: 2015Q3

REPORT INFORMATION
  Report Type: Spontaneous
  Country: DE (occurrence: DE)
  Receive Date: 20150618
  Receipt Date: 20150727
  Transmission Date: 20151125
  Serious: Yes (Hospitalization)
  Sender: FDA-Public Use
  Company Number: DE-JNJFOC-20150607798

PATIENT
  Age: 40 Year
  Sex: Female
  Weight: 100 kg

DRUGS (2)
  1. STELARA [Suspect]
     Active Substance: USTEKINUMAB
     Indication: PSORIASIS
     Route: 058
     Dates: start: 201004, end: 201504
  2. STELARA [Suspect]
     Active Substance: USTEKINUMAB
     Indication: PSORIATIC ARTHROPATHY
     Route: 058
     Dates: start: 201004, end: 201504

REACTIONS (2)
  - Diverticular perforation [Recovered/Resolved with Sequelae]
  - Abdominal adhesions [Recovered/Resolved with Sequelae]

NARRATIVE: CASE EVENT DATE: 201503
